FAERS Safety Report 20915520 (Version 2)
Quarter: 2022Q2

REPORT INFORMATION
  Report Type: Spontaneous
  Country: US (occurrence: US)
  Receive Date: 20220604
  Receipt Date: 20220629
  Transmission Date: 20220720
  Serious: No
  Sender: FDA-Public Use
  Company Number: US-SA-SAC20220527000519

PATIENT
  Age: 59 Year
  Sex: Male

DRUGS (1)
  1. DUPIXENT [Suspect]
     Active Substance: DUPILUMAB
     Indication: Dermatitis atopic
     Dosage: 300 MG, QOW
     Route: 058
     Dates: start: 202104

REACTIONS (14)
  - Skin weeping [Unknown]
  - Skin haemorrhage [Unknown]
  - Skin fissures [Unknown]
  - Eczema [Unknown]
  - Pruritus [Unknown]
  - Scab [Unknown]
  - Eye irritation [Unknown]
  - Lacrimation increased [Unknown]
  - Eye pruritus [Unknown]
  - Dry skin [Unknown]
  - Impaired healing [Unknown]
  - Rash [Unknown]
  - Product dose omission in error [Unknown]
  - Drug ineffective [Unknown]
